FAERS Safety Report 10794891 (Version 1)
Quarter: 2015Q1

REPORT INFORMATION
  Report Type: Spontaneous
  Country: TR (occurrence: TR)
  Receive Date: 20150213
  Receipt Date: 20150213
  Transmission Date: 20150721
  Serious: Yes (Hospitalization)
  Sender: FDA-Public Use
  Company Number: PHHY2015TR016675

PATIENT
  Age: 18 Year
  Sex: Male
  Weight: 86.5 kg

DRUGS (3)
  1. METHYLPHENIDATE [Suspect]
     Active Substance: METHYLPHENIDATE
     Dosage: 486 MG, UNK (9 PILLS)
     Route: 065
  2. RISPERIDONE. [Concomitant]
     Active Substance: RISPERIDONE
     Indication: ATTENTION DEFICIT/HYPERACTIVITY DISORDER
     Dosage: 1 MG, QD
     Route: 065
  3. METHYLPHENIDATE [Suspect]
     Active Substance: METHYLPHENIDATE
     Indication: ATTENTION DEFICIT/HYPERACTIVITY DISORDER
     Dosage: 54 MG, QD
     Route: 065

REACTIONS (6)
  - Restlessness [Unknown]
  - Suicide attempt [Unknown]
  - Sinus tachycardia [Recovered/Resolved]
  - Toxicity to various agents [Unknown]
  - Psychomotor hyperactivity [Unknown]
  - Hypertension [Recovered/Resolved]
